FAERS Safety Report 21316014 (Version 1)
Quarter: 2022Q3

REPORT INFORMATION
  Report Type: Spontaneous
  Country: GB (occurrence: GB)
  Receive Date: 20220910
  Receipt Date: 20220910
  Transmission Date: 20221027
  Serious: Yes (Hospitalization, Other)
  Sender: FDA-Public Use
  Company Number: GB-MSNLABS-2022MSNLIT01037

PATIENT

DRUGS (1)
  1. PACLITAXEL [Suspect]
     Active Substance: PACLITAXEL
     Indication: Breast cancer metastatic
     Route: 065

REACTIONS (4)
  - Bacterial parotitis [Unknown]
  - Facial paralysis [Unknown]
  - Gastroenteritis [Unknown]
  - Dehydration [Unknown]
